FAERS Safety Report 8305011-1 (Version None)
Quarter: 2012Q2

REPORT INFORMATION
  Report Type: 
  Country: None (occurrence: None)
  Receive Date: 20120423
  Receipt Date: 20120322
  Transmission Date: 20120825
  Serious: Yes (Other)
  Sender: FDA-Public Use
  Company Number: CA-ROCHE-1061547

PATIENT
  Sex: Female
  Weight: 81.72 kg

DRUGS (4)
  1. MABTHERA [Suspect]
     Indication: RHEUMATOID ARTHRITIS
     Dosage: DAY 1 AND 15
     Route: 042
     Dates: start: 20091126
  2. CAFFEINE AND CODEINE PHOSPHATE AND PARACETAMOL [Suspect]
     Indication: PRODUCT USED FOR UNKNOWN INDICATION
     Dosage: DRUG REPORTED AS : TYLENOL 3
  3. MELOXICAM [Concomitant]
  4. LEUCOVORIN CALCIUM [Concomitant]

REACTIONS (3)
  - HELICOBACTER INFECTION [None]
  - HEPATIC PAIN [None]
  - HEPATIC ENZYME INCREASED [None]
